FAERS Safety Report 5990675-8 (Version None)
Quarter: 2008Q4

REPORT INFORMATION
  Report Type: 
  Country: None (occurrence: None)
  Receive Date: 20081211
  Receipt Date: 20081201
  Transmission Date: 20090506
  Serious: Yes (Other)
  Sender: FDA-Public Use
  Company Number: BE-WYE-H07022808

PATIENT
  Sex: Male
  Weight: 80 kg

DRUGS (3)
  1. TACROLIMUS [Suspect]
     Indication: PROPHYLAXIS AGAINST TRANSPLANT REJECTION
     Route: 048
     Dates: start: 20070121
  2. GLURENORM [Concomitant]
     Indication: DIABETES MELLITUS
     Dosage: UNSPECIFIED, THREE TIMES PER DAY
     Route: 048
  3. MYCOPHENOLATE MOFETIL [Concomitant]
     Indication: PROPHYLAXIS AGAINST TRANSPLANT REJECTION
     Route: 048
     Dates: start: 20070121

REACTIONS (1)
  - ALPHA 1 FOETOPROTEIN INCREASED [None]
